FAERS Safety Report 6789215-5 (Version None)
Quarter: 2010Q2

REPORT INFORMATION
  Report Type: 
  Country: None (occurrence: None)
  Receive Date: 20100623
  Receipt Date: 20090408
  Transmission Date: 20101027
  Serious: Yes (Other)
  Sender: FDA-Public Use
  Company Number: US-PFIZER INC-2008054804

PATIENT
  Sex: Female

DRUGS (14)
  1. PROVERA [Suspect]
     Indication: HORMONE REPLACEMENT THERAPY
     Dosage: 10 MG, UNK
     Route: 048
     Dates: start: 19920101, end: 20000101
  2. PROVERA [Suspect]
     Indication: MENOPAUSE
  3. MEDROXYPROGESTERONE ACETATE [Suspect]
     Indication: HORMONE REPLACEMENT THERAPY
     Dosage: 2.5 MG, UNK
     Route: 048
     Dates: start: 19920101, end: 20000101
  4. MEDROXYPROGESTERONE ACETATE [Suspect]
     Indication: MENOPAUSE
  5. PREMARIN [Suspect]
     Indication: HORMONE REPLACEMENT THERAPY
     Dosage: UNK
     Dates: start: 19790101, end: 20000101
  6. PREMARIN [Suspect]
     Indication: MENOPAUSE
  7. PREMPRO [Suspect]
     Indication: HORMONE REPLACEMENT THERAPY
     Dosage: UNK
     Dates: start: 19970101, end: 19990101
  8. PREMPRO [Suspect]
     Indication: MENOPAUSE
  9. PROMETRIUM [Suspect]
     Indication: HORMONE REPLACEMENT THERAPY
     Dosage: 100 MG, UNK
     Dates: start: 20010101, end: 20010101
  10. PROMETRIUM [Suspect]
     Indication: MENOPAUSE
  11. CENESTIN [Suspect]
     Indication: HORMONE REPLACEMENT THERAPY
     Dosage: 0.625 MG, UNK
     Dates: start: 20010101, end: 20010101
  12. CENESTIN [Suspect]
     Indication: MENOPAUSE
  13. LOESTRIN 1.5/30 [Suspect]
     Indication: MENOPAUSE
     Dosage: UNK
     Dates: start: 19920101, end: 19950101
  14. ESTRADERM [Suspect]
     Indication: MENOPAUSE
     Dosage: UNK
     Dates: start: 19940101, end: 19960101

REACTIONS (1)
  - BREAST CANCER FEMALE [None]
